APPROVED DRUG PRODUCT: DOXYCYCLINE HYCLATE
Active Ingredient: DOXYCYCLINE HYCLATE
Strength: EQ 150MG BASE
Dosage Form/Route: TABLET;ORAL
Application: A208818 | Product #002 | TE Code: AB
Applicant: LUPIN LTD
Approved: Sep 27, 2017 | RLD: No | RS: No | Type: RX